FAERS Safety Report 9457753 (Version 1)
Quarter: 2013Q3

REPORT INFORMATION
  Report Type: Spontaneous
  Country: US (occurrence: None)
  Receive Date: 20130812
  Receipt Date: 20130812
  Transmission Date: 20140515
  Serious: Yes (Other)
  Sender: FDA-Public Use
  Company Number: None

PATIENT
  Age: 50 Year
  Sex: Female
  Weight: 58.97 kg

DRUGS (1)
  1. ATIVAN (GENERIC) [Suspect]
     Indication: EPILEPSY

REACTIONS (2)
  - Memory impairment [None]
  - Dissociation [None]
